FAERS Safety Report 8624360-0 (Version None)
Quarter: 2012Q3

REPORT INFORMATION
  Report Type: 
  Country: None (occurrence: None)
  Receive Date: 20120827
  Receipt Date: 20120816
  Transmission Date: 20120928
  Serious: Yes (Hospitalization)
  Sender: FDA-Public Use
  Company Number: US-ASTRAZENECA-2012SE59939

PATIENT
  Age: 64 Year
  Sex: Male

DRUGS (1)
  1. SYMBICORT [Suspect]
     Dosage: 80/4.5 MCG, UNKNOWN
     Route: 055

REACTIONS (5)
  - INSOMNIA [None]
  - PNEUMONIA [None]
  - RESPIRATORY DISORDER [None]
  - INFLUENZA [None]
  - LUNG DISORDER [None]
